FAERS Safety Report 9837973 (Version 2)
Quarter: 2014Q3

REPORT INFORMATION
  Report Type: Spontaneous
  Country: US (occurrence: US)
  Receive Date: 20140123
  Receipt Date: 20140817
  Transmission Date: 20150326
  Serious: Yes (Hospitalization)
  Sender: FDA-Public Use
  Company Number: US-009507513-1401USA010061

PATIENT
  Sex: Female
  Weight: 62.13 kg

DRUGS (1)
  1. NUVARING [Suspect]
     Active Substance: ETHINYL ESTRADIOL\ETONOGESTREL
     Indication: CONTRACEPTION
     Dosage: 0.12-0.015 MG. ONE RING FOR 3 WEEKS EVERY MONTH
     Route: 067
     Dates: start: 20110920, end: 20120606

REACTIONS (3)
  - Peripheral venous disease [Unknown]
  - Deep vein thrombosis [Not Recovered/Not Resolved]
  - Post thrombotic syndrome [Unknown]

NARRATIVE: CASE EVENT DATE: 20120605
